FAERS Safety Report 4659904-7 (Version None)
Quarter: 2005Q2

REPORT INFORMATION
  Report Type: 
  Country: None (occurrence: None)
  Receive Date: 20050502
  Receipt Date: 20041215
  Transmission Date: 20051028
  Serious: Yes (Hospitalization)
  Sender: FDA-Public Use
  Company Number: KDL103895

PATIENT
  Age: 58 Year
  Sex: Female
  Weight: 100.3 kg

DRUGS (4)
  1. PROCRIT [Suspect]
     Indication: RENAL FAILURE CHRONIC
     Dosage: 60000 IU, 1 IN 2 WEEKS
     Dates: start: 20040401
  2. LANSOPRAZOLE [Concomitant]
  3. ROSIGLITAZONE [Concomitant]
  4. VALSARTAN [Concomitant]

REACTIONS (2)
  - DEEP VEIN THROMBOSIS [None]
  - HAEMOGLOBIN DECREASED [None]
